FAERS Safety Report 8454675-0 (Version None)
Quarter: 2012Q2

REPORT INFORMATION
  Report Type: 
  Country: None (occurrence: None)
  Receive Date: 20120615
  Receipt Date: 20120615
  Transmission Date: 20120825
  Serious: Yes (Life-Threatening)
  Sender: FDA-Public Use
  Company Number: None

PATIENT
  Sex: Female
  Weight: 88.905 kg

DRUGS (1)
  1. AMLODIPINE BESYLATE [Suspect]
     Indication: HYPERTENSION
     Dosage: 10 MG TABLET 1 TAB. EVERDAY BY MOUTH
     Route: 048
     Dates: start: 20090701, end: 20110101

REACTIONS (7)
  - VAGINAL DISCHARGE [None]
  - UTERINE DISORDER [None]
  - VULVOVAGINAL SWELLING [None]
  - PAIN IN EXTREMITY [None]
  - ARTHRALGIA [None]
  - SWELLING [None]
  - ABASIA [None]
